FAERS Safety Report 8254032-6 (Version None)
Quarter: 2012Q2

REPORT INFORMATION
  Report Type: 
  Country: None (occurrence: None)
  Receive Date: 20120402
  Receipt Date: 20120319
  Transmission Date: 20120825
  Serious: No
  Sender: FDA-Public Use
  Company Number: US-AMGEN-USASP2012017596

PATIENT
  Age: 28 Year
  Sex: Female

DRUGS (1)
  1. ENBREL [Suspect]
     Indication: PSORIATIC ARTHROPATHY
     Dosage: 50 MG, 2 TIMES/WK
     Dates: start: 20120316

REACTIONS (11)
  - PHOTOPHOBIA [None]
  - FEELING JITTERY [None]
  - NERVOUSNESS [None]
  - CHILLS [None]
  - DIZZINESS [None]
  - PRURITUS [None]
  - BLEPHAROSPASM [None]
  - PARAESTHESIA [None]
  - FEELING ABNORMAL [None]
  - HYPOAESTHESIA [None]
  - TREMOR [None]
